FAERS Safety Report 25764800 (Version 3)
Quarter: 2025Q3

REPORT INFORMATION
  Report Type: Report from Study
  Country: US (occurrence: US)
  Receive Date: 20250905
  Receipt Date: 20250929
  Transmission Date: 20251021
  Serious: No
  Sender: ARGENX BVBA
  Company Number: US-ARGENX-2025-ARGX-US009486

PATIENT
  Age: 77 Year
  Sex: Female

DRUGS (1)
  1. VYVGART HYTRULO [Suspect]
     Active Substance: EFGARTIGIMOD ALFA\HYALURONIDASE-QVFC
     Indication: Chronic inflammatory demyelinating polyradiculoneuropathy
     Dosage: 1000 MG, 1/WEEK (STRENGTH: 1000 MG/10,000 UNITS PFS OVER 20 TO 30 SECONDS ONCE WEEKLY)
     Route: 058
     Dates: start: 20250711

REACTIONS (6)
  - Condition aggravated [Unknown]
  - Injection site erythema [Recovered/Resolved]
  - Injection site erythema [Recovered/Resolved]
  - Device issue [Unknown]
  - Device difficult to use [Unknown]
  - Therapeutic product effect variable [Unknown]

NARRATIVE: CASE EVENT DATE: 20250701
